FAERS Safety Report 6940375-2 (Version None)
Quarter: 2010Q3

REPORT INFORMATION
  Report Type: 
  Country: None (occurrence: None)
  Receive Date: 20100820
  Receipt Date: 20100812
  Transmission Date: 20110219
  Serious: Yes (Hospitalization, Other)
  Sender: FDA-Public Use
  Company Number: 2008-183474-NL

PATIENT
  Age: 29 Year
  Sex: Female
  Weight: 74.8 kg

DRUGS (13)
  1. NUVARING [Suspect]
     Indication: PRODUCT USED FOR UNKNOWN INDICATION
     Dosage: 1 DF; QM; VAG
     Route: 067
     Dates: start: 20050429, end: 20080106
  2. ADIPEX-P [Suspect]
     Indication: WEIGHT CONTROL
  3. ADVIL LIQUI-GELS [Concomitant]
  4. CEPHALEXIN [Concomitant]
  5. MEPERIDINE HCL [Concomitant]
  6. DIAZEPAM [Concomitant]
  7. PROMETHAZINE [Concomitant]
  8. HYDROCODONE BITARTRATE AND ACETAMINOPHEN [Concomitant]
  9. CALCIUM [Concomitant]
  10. LORTAB [Concomitant]
  11. MULTI-VITAMIN [Concomitant]
  12. HYDROXYCUT [Concomitant]
  13. CLA [Concomitant]

REACTIONS (29)
  - ANTIPHOSPHOLIPID SYNDROME [None]
  - ANXIETY [None]
  - BRONCHITIS [None]
  - DEEP VEIN THROMBOSIS [None]
  - DEPRESSION [None]
  - DIASTOLIC DYSFUNCTION [None]
  - DIZZINESS [None]
  - DYSPNOEA EXERTIONAL [None]
  - EXERCISE TOLERANCE DECREASED [None]
  - HEADACHE [None]
  - HYPOTENSION [None]
  - HYPOXIA [None]
  - INCREASED TENDENCY TO BRUISE [None]
  - INJECTION SITE PAIN [None]
  - INTERNATIONAL NORMALISED RATIO DECREASED [None]
  - INTERNATIONAL NORMALISED RATIO INCREASED [None]
  - LEUKOCYTOSIS [None]
  - MITRAL VALVE PROLAPSE [None]
  - NAUSEA [None]
  - OEDEMA PERIPHERAL [None]
  - PULMONARY EMBOLISM [None]
  - RIGHT ATRIAL DILATATION [None]
  - RIGHT VENTRICULAR SYSTOLIC PRESSURE INCREASED [None]
  - SINUS ARRHYTHMIA [None]
  - TACHYCARDIA [None]
  - THROMBOCYTOSIS [None]
  - UPPER RESPIRATORY TRACT INFECTION [None]
  - VENTRICULAR DYSKINESIA [None]
  - VOMITING [None]
